FAERS Safety Report 8594604 (Version 3)
Quarter: 2013Q2

REPORT INFORMATION
  Report Type: Spontaneous
  Country: US (occurrence: US)
  Receive Date: 20120604
  Receipt Date: 20130613
  Transmission Date: 20140414
  Serious: Yes (Congenital Anomaly)
  Sender: FDA-Public Use
  Company Number: US-GLAXOSMITHKLINE-A0979879A

PATIENT
  Age: 0 Year
  Sex: Female

DRUGS (2)
  1. PAXIL [Suspect]
     Indication: DEPRESSION
     Route: 064
     Dates: start: 200002, end: 200004
  2. PRENATAL VITAMINS [Concomitant]

REACTIONS (5)
  - Pulmonary valve stenosis congenital [Unknown]
  - Atrial septal defect [Unknown]
  - Pulmonary valve stenosis [Unknown]
  - Cardiac murmur [Unknown]
  - Foetal exposure during pregnancy [Unknown]
